FAERS Safety Report 4848748-9 (Version None)
Quarter: 2005Q4

REPORT INFORMATION
  Report Type: 
  Country: None (occurrence: None)
  Receive Date: 20051206
  Receipt Date: 20051007
  Transmission Date: 20060501
  Serious: Yes (Hospitalization)
  Sender: FDA-Public Use
  Company Number: MPS1-10445

PATIENT
  Sex: Female

DRUGS (1)
  1. ALDURAZYME [Suspect]
     Indication: MUCOPOLYSACCHARIDOSIS I
     Dates: start: 20021201

REACTIONS (5)
  - CARDIAC DISORDER [None]
  - PARAPLEGIA [None]
  - PROCEDURAL COMPLICATION [None]
  - SPINAL CORD INFARCTION [None]
  - TRACHEAL DISORDER [None]
